FAERS Safety Report 25088652 (Version 2)
Quarter: 2025Q2

REPORT INFORMATION
  Report Type: Spontaneous
  Country: SG (occurrence: SG)
  Receive Date: 20250318
  Receipt Date: 20250409
  Transmission Date: 20250717
  Serious: Yes (Hospitalization)
  Sender: ACCORD
  Company Number: SG-MLMSERVICE-20250228-PI430483-00218-3

PATIENT
  Age: 70 Year
  Sex: Female
  Weight: 53 kg

DRUGS (1)
  1. METHOTREXATE [Suspect]
     Active Substance: METHOTREXATE
     Indication: Psoriasis

REACTIONS (5)
  - Acute kidney injury [Recovered/Resolved]
  - Bone marrow failure [Recovered/Resolved]
  - Mouth ulceration [Recovered/Resolved]
  - Skin erosion [Recovered/Resolved]
  - Ulcer [Recovered/Resolved]
